FAERS Safety Report 13998849 (Version 1)
Quarter: 2017Q3

REPORT INFORMATION
  Report Type: Not Available
  Country: US (occurrence: US)
  Receive Date: 20170921
  Receipt Date: 20170921
  Transmission Date: 20171128
  Serious: No
  Sender: FDA-Public Use
  Company Number: US-NEUROCRINE BIOSCIENCES INC.-2017NBI00690

PATIENT
  Sex: Male

DRUGS (17)
  1. MELATONIN [Concomitant]
     Active Substance: MELATONIN
     Dosage: (DUAL-RELEASE) AT NIGHT
  2. OMEPRAZOLE. [Concomitant]
     Active Substance: OMEPRAZOLE
     Dosage: IN THE MORNING
  3. GABAPENTIN. [Concomitant]
     Active Substance: GABAPENTIN
  4. LAMOTRIGINE. [Concomitant]
     Active Substance: LAMOTRIGINE
  5. GABAPENTIN. [Concomitant]
     Active Substance: GABAPENTIN
  6. GLUCOSAMINE CHONDROITIN [Concomitant]
     Active Substance: CHONDROITIN SULFATE (BOVINE)\GLUCOSAMINE HYDROCHLORIDE
  7. VITAMIN D [Concomitant]
     Active Substance: CHOLECALCIFEROL
  8. VITAMIN B6 [Concomitant]
     Active Substance: PYRIDOXINE HYDROCHLORIDE
  9. INGREZZA [Suspect]
     Active Substance: VALBENAZINE
     Indication: TARDIVE DYSKINESIA
     Route: 048
     Dates: start: 201706, end: 201708
  10. PRAZOSIN. [Concomitant]
     Active Substance: PRAZOSIN
     Dosage: 4 TABLETS AT NIGHT
  11. PRAZOSIN. [Concomitant]
     Active Substance: PRAZOSIN
     Dosage: 1 TABLET IN THE MORNING AND 1 TABLET AT NIGHT
  12. MELATONIN [Concomitant]
     Active Substance: MELATONIN
     Dosage: (IMMEDIATE RELEASE) AT BEDTIME
  13. SEROQUEL [Concomitant]
     Active Substance: QUETIAPINE FUMARATE
     Dosage: AT NIGHT
  14. SEROQUEL [Concomitant]
     Active Substance: QUETIAPINE FUMARATE
     Dosage: AT NIGHT
  15. VITAMIN E [Concomitant]
     Active Substance: .ALPHA.-TOCOPHEROL
  16. CALCIUM/MAGNESIUM/ZINC [Concomitant]
  17. VITAMIN D3 [Concomitant]
     Active Substance: CHOLECALCIFEROL

REACTIONS (4)
  - Sedation [Recovered/Resolved]
  - Feeling of relaxation [Recovered/Resolved]
  - Drug ineffective [Unknown]
  - Somnolence [Recovered/Resolved]
